FAERS Safety Report 11402049 (Version 1)
Quarter: 2015Q3

REPORT INFORMATION
  Report Type: Spontaneous
  Country: US (occurrence: US)
  Receive Date: 20150821
  Receipt Date: 20150821
  Transmission Date: 20151125
  Serious: No
  Sender: FDA-Public Use
  Company Number: US-ROCHE-1357518

PATIENT
  Sex: Female

DRUGS (3)
  1. PEGASYS [Suspect]
     Active Substance: PEGINTERFERON ALFA-2A
     Indication: CHRONIC HEPATITIS C
     Dosage: 12 WEEK LENGTH OF TREATMENT.
     Route: 058
     Dates: start: 20140226
  2. RIBASPHERE RIBAPAK [Suspect]
     Active Substance: RIBAVIRIN
     Indication: CHRONIC HEPATITIS C
     Dosage: DIVIDED DOSES. 12 WEEK LENGTH OF TREATMENT.
     Route: 048
     Dates: start: 20140226
  3. SOVALDI [Suspect]
     Active Substance: SOFOSBUVIR
     Indication: CHRONIC HEPATITIS C
     Dosage: 12 WEEK LENGTH OF TREATMENT.
     Route: 065
     Dates: start: 20140226

REACTIONS (3)
  - Chills [Recovered/Resolved]
  - Pyrexia [Unknown]
  - Nausea [Unknown]
